FAERS Safety Report 7771147-7 (Version None)
Quarter: 2011Q3

REPORT INFORMATION
  Report Type: 
  Country: None (occurrence: None)
  Receive Date: 20110922
  Receipt Date: 20110209
  Transmission Date: 20111222
  Serious: Yes (Hospitalization, Other)
  Sender: FDA-Public Use
  Company Number: US-ASTRAZENECA-2007UW05112

PATIENT
  Age: 47 Year
  Sex: Male
  Weight: 104.3 kg

DRUGS (6)
  1. DEXATRIM [Concomitant]
     Indication: WEIGHT CONTROL
  2. ZYPREXA [Concomitant]
     Dosage: 10 MG
     Dates: start: 20030901
  3. COLONAPIN [Concomitant]
     Dosage: 0.05 MG
     Dates: start: 20030601
  4. ZOLOFT [Concomitant]
     Dosage: 50 MG
     Dates: start: 20030501
  5. SEROQUEL [Suspect]
     Indication: BIPOLAR DISORDER
     Dosage: 200 MG
     Route: 048
     Dates: start: 20041020, end: 20060108
  6. RISPERDAL [Concomitant]
     Dosage: 1 MG
     Dates: start: 20030601

REACTIONS (4)
  - ROAD TRAFFIC ACCIDENT [None]
  - KETOACIDOSIS [None]
  - DIABETIC KETOACIDOSIS [None]
  - TYPE 2 DIABETES MELLITUS [None]
